FAERS Safety Report 9415185 (Version 2)
Quarter: 2013Q3

REPORT INFORMATION
  Report Type: Spontaneous
  Country: ES (occurrence: ES)
  Receive Date: 20130723
  Receipt Date: 20130801
  Transmission Date: 20140515
  Serious: Yes (Other)
  Sender: FDA-Public Use
  Company Number: ES-GENZYME-CAMP-1003036

PATIENT
  Age: 54 Year
  Sex: Female

DRUGS (4)
  1. CAMPATH [Suspect]
     Indication: MULTIPLE SCLEROSIS
     Dosage: 12 MG, UNK
     Route: 042
     Dates: start: 201205, end: 201205
  2. MEMANTINE [Concomitant]
     Indication: COGNITIVE DISORDER
     Dosage: 10 MG, QD
     Route: 065
  3. PAROXETIN [Concomitant]
     Indication: DEPRESSION
     Dosage: 20 MG, QD
     Route: 065
  4. LIORESAL [Concomitant]
     Indication: MUSCLE SPASTICITY
     Dosage: 25 MG, QD
     Route: 065

REACTIONS (2)
  - Breast cancer [Not Recovered/Not Resolved]
  - Off label use [Unknown]
